FAERS Safety Report 8510430-4 (Version None)
Quarter: 2012Q3

REPORT INFORMATION
  Report Type: 
  Country: None (occurrence: None)
  Receive Date: 20120714
  Receipt Date: 20120711
  Transmission Date: 20120928
  Serious: Yes (Death, Other)
  Sender: FDA-Public Use
  Company Number: PHHY2012GB059697

PATIENT
  Age: 79 Year
  Sex: Female
  Weight: 55.45 kg

DRUGS (27)
  1. CLARITHROMYCIN [Suspect]
     Indication: PNEUMONIA
     Dosage: 500 MG, BID
     Route: 048
     Dates: start: 20120512, end: 20120521
  2. ACETAMINOPHEN AND CODEINE PHOSPHATE [Concomitant]
  3. OMEPRAZOLE [Concomitant]
  4. CANDESARTAN [Concomitant]
  5. CLOTRIMAZOLE [Concomitant]
  6. ACETAMINOPHEN [Concomitant]
  7. TEICOPLANIN [Concomitant]
     Indication: PNEUMONIA
  8. TRAMADOL HCL [Concomitant]
  9. WARFARIN SODIUM [Concomitant]
     Indication: PULMONARY EMBOLISM
  10. DALTEPARIN SODIUM [Concomitant]
  11. SODIUM BICARBONATE [Concomitant]
  12. FORTISIP [Concomitant]
  13. GENTAMICIN [Concomitant]
  14. ADCAL-D3 [Concomitant]
  15. ADENOSINE [Concomitant]
  16. HEPARIN [Concomitant]
     Indication: PULMONARY EMBOLISM
  17. BUMETANIDE [Suspect]
  18. SPIRONOLACTONE [Suspect]
  19. METHOTREXATE [Suspect]
  20. AMIODARONE HCL [Concomitant]
  21. METOCLOPRAMIDE [Concomitant]
  22. BISOPROLOL FUMARATE [Concomitant]
  23. AMOXICILLIN AND CLAVULANATE POTASSIUM [Concomitant]
  24. DICLOFENAC [Concomitant]
  25. FUROSEMIDE [Concomitant]
  26. SIMVASTATIN [Suspect]
  27. FOLIC ACID [Concomitant]

REACTIONS (23)
  - TOXIC EPIDERMAL NECROLYSIS [None]
  - EXFOLIATIVE RASH [None]
  - HAEMOGLOBIN DECREASED [None]
  - STEVENS-JOHNSON SYNDROME [None]
  - BLISTER [None]
  - FLUID OVERLOAD [None]
  - HYPERSENSITIVITY [None]
  - ATRIAL FIBRILLATION [None]
  - PRURITUS [None]
  - RASH PRURITIC [None]
  - RASH MACULO-PAPULAR [None]
  - RASH GENERALISED [None]
  - PETECHIAE [None]
  - SCAB [None]
  - DRY SKIN [None]
  - SWELLING [None]
  - PAIN [None]
  - RENAL FAILURE ACUTE [None]
  - OEDEMA PERIPHERAL [None]
  - ERYTHEMA [None]
  - ECZEMA [None]
  - PULMONARY FIBROSIS [None]
  - FEELING HOT [None]
